FAERS Safety Report 9688091 (Version 1)
Quarter: 2013Q4

REPORT INFORMATION
  Report Type: Spontaneous
  Country: GB (occurrence: GB)
  Receive Date: 20131114
  Receipt Date: 20131114
  Transmission Date: 20140711
  Serious: Yes (Hospitalization)
  Sender: FDA-Public Use
  Company Number: GB-MYLANLABS-2013S1025127

PATIENT
  Age: 57 Year
  Sex: Male

DRUGS (1)
  1. PHENYTOIN [Suspect]
     Indication: OVERDOSE
     Dosage: UP TO 13G
     Route: 048

REACTIONS (7)
  - Overdose [Recovering/Resolving]
  - Toxicity to various agents [Recovering/Resolving]
  - Respiratory arrest [Recovered/Resolved]
  - Agitation [Unknown]
  - Confusional state [Unknown]
  - Ataxia [Unknown]
  - Nystagmus [Unknown]
